FAERS Safety Report 23170900 (Version 1)
Quarter: 2023Q4

REPORT INFORMATION
  Report Type: Report from Study
  Country: CN (occurrence: CN)
  Receive Date: 20231110
  Receipt Date: 20231110
  Transmission Date: 20240110
  Serious: Yes (Life-Threatening, Hospitalization)
  Sender: FDA-Public Use
  Company Number: CN-Eisai-EC-2023-152445

PATIENT
  Age: 70 Year
  Sex: Female

DRUGS (16)
  1. LENVATINIB [Suspect]
     Active Substance: LENVATINIB
     Indication: Hepatocellular carcinoma
     Route: 048
     Dates: start: 20230530, end: 20230613
  2. LENVATINIB [Suspect]
     Active Substance: LENVATINIB
     Route: 048
     Dates: start: 20230622, end: 20230622
  3. LENVATINIB [Suspect]
     Active Substance: LENVATINIB
     Route: 048
     Dates: start: 20230628, end: 20230905
  4. DURVALUMAB [Suspect]
     Active Substance: DURVALUMAB
     Indication: Hepatocellular carcinoma
     Route: 042
     Dates: start: 20230530, end: 20230530
  5. DURVALUMAB [Suspect]
     Active Substance: DURVALUMAB
     Route: 042
     Dates: start: 20230628, end: 20230628
  6. DURVALUMAB [Suspect]
     Active Substance: DURVALUMAB
     Route: 042
     Dates: start: 20230726, end: 20230726
  7. DURVALUMAB [Suspect]
     Active Substance: DURVALUMAB
     Route: 042
     Dates: start: 20230906, end: 20230906
  8. TREMELIMUMAB [Suspect]
     Active Substance: TREMELIMUMAB
     Indication: Hepatocellular carcinoma
     Dosage: UNKNOWN FREQUENCY
     Route: 042
     Dates: start: 20230530, end: 20230530
  9. TREMELIMUMAB [Suspect]
     Active Substance: TREMELIMUMAB
     Route: 042
     Dates: start: 20230530, end: 20230530
  10. TREMELIMUMAB [Suspect]
     Active Substance: TREMELIMUMAB
     Route: 042
     Dates: start: 20230530, end: 20230530
  11. TREMELIMUMAB [Suspect]
     Active Substance: TREMELIMUMAB
     Route: 042
     Dates: start: 20230530, end: 20230530
  12. TREMELIMUMAB [Suspect]
     Active Substance: TREMELIMUMAB
     Route: 042
     Dates: start: 20230530, end: 20230530
  13. TREMELIMUMAB [Suspect]
     Active Substance: TREMELIMUMAB
     Route: 042
     Dates: start: 20230530, end: 20230530
  14. TENOFOVIR AMIBUFENAMIDE [Concomitant]
     Active Substance: TENOFOVIR AMIBUFENAMIDE
     Dates: start: 20230622
  15. ADEFOVIR DIPIVOXIL [Concomitant]
     Active Substance: ADEFOVIR DIPIVOXIL
     Dates: start: 2009
  16. LAMIVUDINE [Concomitant]
     Active Substance: LAMIVUDINE
     Dates: start: 2009, end: 2023

REACTIONS (1)
  - Pneumonia [Not Recovered/Not Resolved]

NARRATIVE: CASE EVENT DATE: 20230726
